FAERS Safety Report 19674768 (Version 1)
Quarter: 2021Q3

REPORT INFORMATION
  Report Type: Spontaneous
  Country: US (occurrence: US)
  Receive Date: 20210809
  Receipt Date: 20210809
  Transmission Date: 20211014
  Serious: No
  Sender: FDA-Public Use
  Company Number: US-BAYER-2021-185135

PATIENT
  Sex: Female

DRUGS (1)
  1. BETASERON [Suspect]
     Active Substance: INTERFERON BETA-1B
     Dosage: 3 MG
     Dates: end: 20151116

REACTIONS (6)
  - Injection site mass [None]
  - Depression [None]
  - Injection site bruising [None]
  - Feeling abnormal [None]
  - Drug ineffective [None]
  - Influenza [None]
